FAERS Safety Report 5583106-3 (Version None)
Quarter: 2008Q1

REPORT INFORMATION
  Report Type: 
  Country: None (occurrence: None)
  Receive Date: 20080107
  Receipt Date: 20071221
  Transmission Date: 20080703
  Serious: Yes (Congenital Anomaly)
  Sender: FDA-Public Use
  Company Number: US-AVENTIS-200721698GDDC

PATIENT
  Sex: Male

DRUGS (26)
  1. ARAVA [Suspect]
     Indication: RHEUMATOID ARTHRITIS
     Route: 064
     Dates: start: 20070423, end: 20070522
  2. PRENATAL VITAMINS                  /01549301/ [Concomitant]
     Route: 048
     Dates: start: 20070531, end: 20070725
  3. FOLIC ACID [Concomitant]
     Route: 048
     Dates: start: 20070601, end: 20071217
  4. IRON [Concomitant]
     Route: 048
     Dates: start: 20070605, end: 20070925
  5. DEPO PROVERA                       /00115202/ [Concomitant]
     Route: 051
     Dates: start: 20070507, end: 20070507
  6. CAFFEINE CITRATE [Concomitant]
     Route: 048
     Dates: start: 20070412, end: 20070629
  7. CHOLESTYRAMINE [Concomitant]
     Route: 048
     Dates: start: 20070618, end: 20070627
  8. PLAQUENIL                          /00072601/ [Concomitant]
     Route: 048
     Dates: start: 20070412, end: 20071217
  9. VOLTAREN [Concomitant]
     Route: 048
     Dates: start: 20070412, end: 20070521
  10. COLACE [Concomitant]
     Dosage: DOSE: 2 PILLS
     Route: 048
     Dates: start: 20070622, end: 20070729
  11. TYLENOL [Concomitant]
     Dosage: DOSE: 2 PILLS
     Route: 048
     Dates: start: 20070521, end: 20070521
  12. TYLENOL [Concomitant]
     Dosage: DOSE: 2 PILLS
     Route: 048
     Dates: start: 20070501, end: 20070531
  13. MOTRIN [Concomitant]
     Dosage: DOSE: 1 PILL
     Route: 048
     Dates: start: 20070518, end: 20070519
  14. FLINTSTONES MULTIPLE VITAMINS [Concomitant]
     Dosage: DOSE: 2 PILLS
     Route: 048
     Dates: start: 20070726, end: 20071217
  15. PREDNISONE TAB [Concomitant]
     Route: 048
     Dates: start: 20070715, end: 20070914
  16. PREDNISONE TAB [Concomitant]
     Route: 048
     Dates: start: 20070914, end: 20071001
  17. PREDNISONE TAB [Concomitant]
     Route: 048
     Dates: start: 20071001, end: 20071007
  18. PREDNISONE TAB [Concomitant]
     Route: 048
     Dates: start: 20071008, end: 20071014
  19. PREDNISONE TAB [Concomitant]
     Route: 048
     Dates: start: 20071015, end: 20071022
  20. PREDNISONE TAB [Concomitant]
     Route: 048
     Dates: start: 20071023, end: 20071217
  21. CLINDAMYCIN HCL [Concomitant]
     Route: 048
     Dates: start: 20070824, end: 20070830
  22. LORTAB [Concomitant]
     Route: 048
     Dates: start: 20070828, end: 20070902
  23. IRON [Concomitant]
     Route: 048
     Dates: start: 20070925, end: 20071217
  24. ZANTAC [Concomitant]
     Route: 048
     Dates: start: 20071213, end: 20071213
  25. INFLUENZA VACCINE [Concomitant]
     Route: 051
     Dates: start: 20070914, end: 20070914
  26. CORTICOSTEROIDS [Concomitant]
     Dosage: DOSE: 2 SHOTS
     Route: 051
     Dates: start: 20071124, end: 20071130

REACTIONS (4)
  - CARDIAC DISORDER [None]
  - CLEFT PALATE [None]
  - DRUG EXPOSURE DURING PREGNANCY [None]
  - DYSPLASIA [None]
